FAERS Safety Report 11850385 (Version 2)
Quarter: 2016Q1

REPORT INFORMATION
  Report Type: Spontaneous
  Country: US (occurrence: US)
  Receive Date: 20151218
  Receipt Date: 20160203
  Transmission Date: 20160526
  Serious: No
  Sender: FDA-Public Use
  Company Number: US-JNJFOC-20151114714

PATIENT
  Age: 86 Year
  Sex: Male
  Weight: 79.38 kg

DRUGS (6)
  1. MORPHINE [Concomitant]
     Active Substance: MORPHINE
     Indication: PLEURAL EFFUSION
     Route: 065
  2. ASPIRIN. [Concomitant]
     Active Substance: ASPIRIN
     Indication: CARDIAC DISORDER
     Route: 065
  3. VITAMINS NOS [Concomitant]
     Active Substance: VITAMINS
     Indication: NUTRITIONAL SUPPLEMENTATION
     Dosage: PILLS
     Route: 065
  4. OCUVITE EXTRA [Concomitant]
     Indication: NUTRITIONAL SUPPLEMENTATION
     Route: 065
  5. TYLENOL EXTRA STRENGTH [Suspect]
     Active Substance: ACETAMINOPHEN
     Indication: FRACTURE PAIN
     Dosage: AS NEEDED FOR PAIN, HAD BEEN TAKING ABOUT 4 A DAY
     Route: 048
     Dates: start: 20151029
  6. FENTANYL. [Concomitant]
     Active Substance: FENTANYL
     Indication: PLEURAL EFFUSION
     Route: 065

REACTIONS (2)
  - Product use issue [Not Recovered/Not Resolved]
  - Off label use [Not Recovered/Not Resolved]

NARRATIVE: CASE EVENT DATE: 20151105
